FAERS Safety Report 13047457 (Version 2)
Quarter: 2016Q4

REPORT INFORMATION
  Report Type: Spontaneous
  Country: US (occurrence: US)
  Receive Date: 20161220
  Receipt Date: 20161227
  Transmission Date: 20170207
  Serious: Yes (Life-Threatening, Other)
  Sender: FDA-Public Use
  Company Number: US-009507513-1612USA009375

PATIENT
  Age: 17 Year
  Sex: Male

DRUGS (2)
  1. INSULIN [Interacting]
     Active Substance: INSULIN NOS
     Indication: DIABETES MELLITUS
  2. LISINOPRIL. [Suspect]
     Active Substance: LISINOPRIL

REACTIONS (4)
  - Shock [Unknown]
  - Hypotension [Unknown]
  - Myocardial infarction [Unknown]
  - Drug interaction [Unknown]
